FAERS Safety Report 5280448-6 (Version None)
Quarter: 2007Q1

REPORT INFORMATION
  Report Type: 
  Country: None (occurrence: None)
  Receive Date: 20070329
  Receipt Date: 20070321
  Transmission Date: 20070707
  Serious: Yes (Hospitalization)
  Sender: FDA-Public Use
  Company Number: FR-AVENTIS-200711072FR

PATIENT
  Age: 60 Year
  Sex: Female
  Weight: 78 kg

DRUGS (3)
  1. LASILIX                            /00032601/ [Suspect]
     Indication: DRUG USE FOR UNKNOWN INDICATION
     Route: 048
     Dates: start: 20061122, end: 20061219
  2. BACTRIM [Suspect]
     Indication: DRUG USE FOR UNKNOWN INDICATION
     Route: 048
     Dates: start: 20061025, end: 20070121
  3. TEMODAL [Suspect]
     Indication: DRUG USE FOR UNKNOWN INDICATION
     Route: 048
     Dates: start: 20061101, end: 20061215

REACTIONS (4)
  - CHEILITIS [None]
  - MOUTH ULCERATION [None]
  - RASH [None]
  - RASH MACULO-PAPULAR [None]
